FAERS Safety Report 24617353 (Version 2)
Quarter: 2024Q4

REPORT INFORMATION
  Report Type: Report from Study
  Country: CA (occurrence: CA)
  Receive Date: 20241114
  Receipt Date: 20241126
  Transmission Date: 20250115
  Serious: Yes (Other)
  Sender: JOHNSON AND JOHNSON
  Company Number: CA-JNJFOC-20240948190

PATIENT
  Age: 33 Year
  Sex: Female
  Weight: 66 kg

DRUGS (1)
  1. REMICADE [Suspect]
     Active Substance: INFLIXIMAB
     Indication: Crohn^s disease
     Route: 041
     Dates: start: 20100607

REACTIONS (3)
  - Conjunctivitis [Recovering/Resolving]
  - Herpes zoster [Recovering/Resolving]
  - Impetigo [Not Recovered/Not Resolved]

NARRATIVE: CASE EVENT DATE: 20240825
